FAERS Safety Report 13688564 (Version 1)
Quarter: 2017Q2

REPORT INFORMATION
  Report Type: Spontaneous
  Country: US (occurrence: US)
  Receive Date: 20170623
  Receipt Date: 20170623
  Transmission Date: 20170830
  Serious: Yes (Hospitalization)
  Sender: FDA-Public Use
  Company Number: None

PATIENT
  Age: 31 Year
  Sex: Female
  Weight: 107 kg

DRUGS (2)
  1. TRESIBA INSULIN [Concomitant]
  2. FARXIGA [Suspect]
     Active Substance: DAPAGLIFLOZIN PROPANEDIOL
     Route: 048

REACTIONS (3)
  - Diabetic ketoacidosis [None]
  - Drug dose omission [None]
  - Diet noncompliance [None]

NARRATIVE: CASE EVENT DATE: 20170623
